FAERS Safety Report 10261237 (Version 1)
Quarter: 2014Q2

REPORT INFORMATION
  Report Type: Spontaneous
  Country: US (occurrence: None)
  Receive Date: 20140623
  Receipt Date: 20140623
  Transmission Date: 20141212
  Serious: Yes (Other)
  Sender: FDA-Public Use
  Company Number: 2391539

PATIENT
  Age: 11 Year
  Sex: Female
  Weight: 46.8 kg

DRUGS (2)
  1. CARBOPLATIN INJECTION (CARBOPLATIN) [Suspect]
     Indication: OPTIC NERVE NEOPLASM
     Dosage: 1 WEEK
     Route: 041
  2. VINCRISTINE HOSPIRA (VINCRISTINE SULFATE) [Concomitant]

REACTIONS (7)
  - Infusion site reaction [None]
  - Chills [None]
  - Vomiting [None]
  - Pain [None]
  - Infusion site erythema [None]
  - Infusion site swelling [None]
  - Infusion site urticaria [None]
